FAERS Safety Report 18998957 (Version 3)
Quarter: 2021Q2

REPORT INFORMATION
  Report Type: Report from Study
  Country: DE (occurrence: DE)
  Receive Date: 20210311
  Receipt Date: 20210618
  Transmission Date: 20210717
  Serious: Yes (Death, Hospitalization, Other)
  Sender: FDA-Public Use
  Company Number: DE-TEVA-2021-DE-1889296

PATIENT
  Age: 80 Year
  Sex: Male

DRUGS (2)
  1. LEVACT 2.5MG/ML [Suspect]
     Active Substance: BENDAMUSTINE HYDROCHLORIDE
     Indication: LYMPHOMA
     Dosage: (ONE CYCLE, ON DAY 1 AND 2)
     Route: 042
     Dates: start: 202002, end: 2020
  2. OBINUTUZUMAB. [Concomitant]
     Active Substance: OBINUTUZUMAB
     Indication: LYMPHOMA
     Dosage: (ON DAY 1, 8, AND 15)
     Route: 065
     Dates: start: 202002, end: 2020

REACTIONS (3)
  - Underdose [Unknown]
  - Respiratory failure [Fatal]
  - COVID-19 pneumonia [Fatal]

NARRATIVE: CASE EVENT DATE: 2020
